FAERS Safety Report 7972796-3 (Version None)
Quarter: 2011Q4

REPORT INFORMATION
  Report Type: 
  Country: None (occurrence: None)
  Receive Date: 20111213
  Receipt Date: 20111208
  Transmission Date: 20120403
  Serious: No
  Sender: FDA-Public Use
  Company Number: US-PFIZER INC-2011300324

PATIENT
  Sex: Female
  Weight: 75.737 kg

DRUGS (7)
  1. COUMADIN [Concomitant]
     Dosage: UNK
  2. AVALIDE [Concomitant]
     Dosage: UNK
  3. SYNTHROID [Concomitant]
     Dosage: UNK
  4. LIPITOR [Concomitant]
     Dosage: UNK
  5. VENLAFAXINE [Suspect]
     Dosage: UNK
     Dates: start: 20111111
  6. EFFEXOR XR [Suspect]
     Dosage: 75 MG, 2X/DAY
     Route: 048
     Dates: end: 20111111
  7. CLONAZEPAM [Concomitant]
     Dosage: UNK

REACTIONS (8)
  - DRUG HYPERSENSITIVITY [None]
  - ABDOMINAL DISCOMFORT [None]
  - HEADACHE [None]
  - DEPRESSION [None]
  - NAUSEA [None]
  - FEELING ABNORMAL [None]
  - FOOD ALLERGY [None]
  - DYSGEUSIA [None]
